FAERS Safety Report 8563590-3 (Version None)
Quarter: 2012Q3

REPORT INFORMATION
  Report Type: 
  Country: None (occurrence: None)
  Receive Date: 20120803
  Receipt Date: 20120723
  Transmission Date: 20120928
  Serious: Yes (Hospitalization)
  Sender: FDA-Public Use
  Company Number: US-009507513-1206USA02615

PATIENT

DRUGS (2)
  1. VORINOSTAT-MYCOSIS FUNGOIDES [Suspect]
     Indication: GLIOBLASTOMA MULTIFORME
     Dosage: 300 MG, ON DAYS 1- 5,WEEKLY
     Route: 048
     Dates: start: 20120605
  2. TEMODAR [Suspect]
     Indication: GLIOBLASTOMA MULTIFORME
     Dosage: 75 MG/M2, QD
     Route: 048
     Dates: start: 20120605

REACTIONS (2)
  - HEADACHE [None]
  - WOUND INFECTION [None]
